FAERS Safety Report 22047535 (Version 4)
Quarter: 2023Q2

REPORT INFORMATION
  Report Type: Report from Study
  Country: FR (occurrence: None)
  Receive Date: 20230301
  Receipt Date: 20230623
  Transmission Date: 20230721
  Serious: Yes (Life-Threatening, Hospitalization)
  Sender: FDA-Public Use
  Company Number: FR-ROCHE-3292943

PATIENT
  Age: 74 Year
  Sex: Male

DRUGS (14)
  1. ATEZOLIZUMAB [Suspect]
     Active Substance: ATEZOLIZUMAB
     Indication: Non-small cell lung cancer
     Dosage: LAST DOSE OF ADMINISTRATION: 31/JAN/2023, 23/MAY/2023
     Route: 065
     Dates: start: 20230124
  2. PACLITAXEL [Suspect]
     Active Substance: PACLITAXEL
     Indication: Non-small cell lung cancer
     Dosage: LAST DOSE OF ADMINISTRATION: 31/JAN/2023
     Route: 065
     Dates: start: 20230124
  3. CARBOPLATIN [Suspect]
     Active Substance: CARBOPLATIN
     Indication: Non-small cell lung cancer
     Dosage: AUC 6 EVERY 4 WEEKS?LAST DOSE OF ADMINISTRATION: 31/JAN/2023
     Route: 065
     Dates: start: 20230124
  4. ALFUZOSIN HYDROCHLORIDE [Concomitant]
     Active Substance: ALFUZOSIN HYDROCHLORIDE
     Dosage: 1 PER NIGHT
  5. ENSTILAR [Concomitant]
     Active Substance: BETAMETHASONE DIPROPIONATE\CALCIPOTRIENE HYDRATE
  6. SERETIDE [Concomitant]
     Active Substance: FLUTICASONE PROPIONATE\SALMETEROL XINAFOATE
  7. KARDEGIC [Concomitant]
     Active Substance: ASPIRIN DL-LYSINE
  8. TICAGRELOR [Concomitant]
     Active Substance: TICAGRELOR
  9. PANTOPRAZOLE [Concomitant]
     Active Substance: PANTOPRAZOLE
  10. ATORVASTATIN [Concomitant]
     Active Substance: ATORVASTATIN
  11. BISOPROLOL [Concomitant]
     Active Substance: BISOPROLOL
  12. PERINDOPRIL [Concomitant]
     Active Substance: PERINDOPRIL
  13. BILASTINE [Concomitant]
     Active Substance: BILASTINE
  14. CHOLECALCIFEROL [Concomitant]
     Active Substance: CHOLECALCIFEROL

REACTIONS (2)
  - Myocardial infarction [Recovered/Resolved]
  - Hepatitis [Not Recovered/Not Resolved]

NARRATIVE: CASE EVENT DATE: 20230204
